FAERS Safety Report 5638726-4 (Version None)
Quarter: 2008Q1

REPORT INFORMATION
  Report Type: 
  Country: None (occurrence: None)
  Receive Date: 20080226
  Receipt Date: 20080219
  Transmission Date: 20080703
  Serious: Yes (Hospitalization)
  Sender: FDA-Public Use
  Company Number: JP-ASTRAZENECA-2008AP01007

PATIENT
  Age: 17428 Day
  Sex: Female
  Weight: 55 kg

DRUGS (3)
  1. CRESTOR [Suspect]
     Indication: HYPERLIPIDAEMIA
     Route: 048
     Dates: start: 20070915, end: 20080207
  2. CRAVIT [Suspect]
     Indication: ENTERITIS INFECTIOUS
     Dosage: DOSE UNKNOWN
     Route: 048
     Dates: start: 20080129, end: 20080129
  3. CHOLEBRINE [Suspect]
     Indication: HYPERLIPIDAEMIA
     Dosage: DOSE UNKNOWN
     Route: 048

REACTIONS (1)
  - HEPATIC FUNCTION ABNORMAL [None]
